FAERS Safety Report 20101232 (Version 2)
Quarter: 2022Q1

REPORT INFORMATION
  Report Type: Spontaneous
  Country: IT (occurrence: IT)
  Receive Date: 20211123
  Receipt Date: 20220129
  Transmission Date: 20220423
  Serious: Yes (Other)
  Sender: FDA-Public Use
  Company Number: IT-NOVARTISPH-NVSC2021IT265473

PATIENT
  Sex: Male

DRUGS (4)
  1. BEOVU [Suspect]
     Active Substance: BROLUCIZUMAB-DBLL
     Indication: Neovascular age-related macular degeneration
     Dosage: UNK
     Route: 065
     Dates: start: 20210908
  2. BEOVU [Suspect]
     Active Substance: BROLUCIZUMAB-DBLL
     Dosage: UNK
     Route: 065
     Dates: start: 20211011
  3. BEOVU [Suspect]
     Active Substance: BROLUCIZUMAB-DBLL
     Dosage: UNK
     Route: 065
     Dates: start: 20211116
  4. DEXAMETHASONE [Suspect]
     Active Substance: DEXAMETHASONE
     Indication: Iridocyclitis
     Dosage: UNK (TAPERING THERAPY FOR 3 WEEKS)
     Route: 065

REACTIONS (7)
  - Cataract nuclear [Unknown]
  - Retinal oedema [Unknown]
  - Iridocyclitis [Recovered/Resolved with Sequelae]
  - Ocular discomfort [Recovered/Resolved]
  - Hypopyon [Recovered/Resolved with Sequelae]
  - Corneal oedema [Unknown]
  - Intraocular pressure increased [Recovering/Resolving]
